FAERS Safety Report 13084699 (Version 1)
Quarter: 2017Q1

REPORT INFORMATION
  Report Type: Spontaneous
  Country: US (occurrence: US)
  Receive Date: 20170103
  Receipt Date: 20170103
  Transmission Date: 20170428
  Serious: No
  Sender: FDA-Public Use
  Company Number: None

PATIENT
  Age: 78 Year
  Sex: Female

DRUGS (1)
  1. PROLIA [Suspect]
     Active Substance: DENOSUMAB
     Indication: OSTEOPOROSIS
     Dosage: 60MG Q 6  MONTHS SQ
     Route: 058
     Dates: start: 201606, end: 20161229

REACTIONS (3)
  - Arthralgia [None]
  - Pancreatic disorder [None]
  - Fatigue [None]

NARRATIVE: CASE EVENT DATE: 201606
